FAERS Safety Report 4755176-3 (Version None)
Quarter: 2005Q3

REPORT INFORMATION
  Report Type: 
  Country: None (occurrence: None)
  Receive Date: 20050829
  Receipt Date: 20050819
  Transmission Date: 20060218
  Serious: Yes (Hospitalization)
  Sender: FDA-Public Use
  Company Number: US-JNJFOC-20050700588

PATIENT
  Sex: Female
  Weight: 76.2 kg

DRUGS (1)
  1. REMICADE [Suspect]
     Dosage: DOSE GIVEN AT RATE OF 100CC
     Route: 042

REACTIONS (5)
  - DRUG ADMINISTRATION ERROR [None]
  - DYSPNOEA [None]
  - INFUSION RELATED REACTION [None]
  - MUSCLE SPASMS [None]
  - PAIN [None]
